FAERS Safety Report 7424885-X (Version None)
Quarter: 2011Q2

REPORT INFORMATION
  Report Type: 
  Country: None (occurrence: None)
  Receive Date: 20110419
  Receipt Date: 20090526
  Transmission Date: 20111010
  Serious: Yes (Other)
  Sender: FDA-Public Use
  Company Number: DE-GENENTECH-316939

PATIENT
  Age: 86 Year
  Sex: Female

DRUGS (1)
  1. LUCENTIS [Suspect]
     Indication: MACULAR DEGENERATION
     Route: 031

REACTIONS (6)
  - NASOPHARYNGITIS [None]
  - ANGINA PECTORIS [None]
  - ANXIETY [None]
  - MALAISE [None]
  - VISUAL IMPAIRMENT [None]
  - INFLUENZA [None]
